FAERS Safety Report 5080264-4 (Version None)
Quarter: 2006Q3

REPORT INFORMATION
  Report Type: 
  Country: None (occurrence: None)
  Receive Date: 20060815
  Receipt Date: 20060706
  Transmission Date: 20061208
  Serious: No
  Sender: FDA-Public Use
  Company Number: 2006AP03150

PATIENT
  Age: 27452 Day
  Sex: Female
  Weight: 90 kg

DRUGS (9)
  1. SEROQUEL [Suspect]
     Indication: PSYCHOTIC DISORDER
     Route: 048
     Dates: end: 20060315
  2. VALPRO [Suspect]
     Dates: end: 20060201
  3. HALOPERIDOL [Concomitant]
  4. EPILIM [Concomitant]
     Indication: PSYCHOTIC DISORDER
  5. FUROSEMIDE [Concomitant]
  6. GOPTEN [Concomitant]
  7. OMEPRAZOLE [Concomitant]
  8. IMDUR [Concomitant]
  9. LIPITOR [Concomitant]

REACTIONS (1)
  - THROMBOCYTOPENIA [None]
